FAERS Safety Report 7183742-7 (Version None)
Quarter: 2010Q4

REPORT INFORMATION
  Report Type: 
  Country: None (occurrence: None)
  Receive Date: 20101220
  Receipt Date: 20101220
  Transmission Date: 20110411
  Serious: Yes (Hospitalization)
  Sender: FDA-Public Use
  Company Number: None

PATIENT
  Age: 55 Year
  Sex: Female
  Weight: 120.9 kg

DRUGS (12)
  1. BENAZEPRIL HYDROCHLORIDE [Suspect]
     Indication: HYPERTENSION
     Dosage: 20MG DAILY PO  CHRONIC
     Route: 048
  2. TYLENOL-500 [Concomitant]
  3. HYDROCODONE [Concomitant]
  4. NAPROSYN [Concomitant]
  5. OMEPRAZOLE [Concomitant]
  6. DITROPAN [Concomitant]
  7. METALAZONE [Concomitant]
  8. ADVAIR DISKUS 100/50 [Concomitant]
  9. FERROUS SULFATE [Concomitant]
  10. ZYPREXA [Concomitant]
  11. LASIX [Concomitant]
  12. SERTRALINE [Concomitant]

REACTIONS (4)
  - ANGIOEDEMA [None]
  - ENCEPHALOPATHY [None]
  - HYPOKALAEMIA [None]
  - MENTAL STATUS CHANGES [None]
